FAERS Safety Report 10562792 (Version 1)
Quarter: 2014Q4

REPORT INFORMATION
  Report Type: Spontaneous
  Country: US (occurrence: None)
  Receive Date: 20141103
  Receipt Date: 20141103
  Transmission Date: 20150529
  Serious: Yes (Other)
  Sender: FDA-Public Use
  Company Number: None

PATIENT
  Age: 36 Year
  Sex: Female
  Weight: 77.11 kg

DRUGS (5)
  1. ABILIFY [Suspect]
     Active Substance: ARIPIPRAZOLE
     Indication: BIPOLAR I DISORDER
     Dosage: 1 PILL
     Route: 048
     Dates: start: 20140701, end: 20140730
  2. CLONAZEPAM. [Concomitant]
     Active Substance: CLONAZEPAM
  3. AMITRIPTYLINE [Concomitant]
     Active Substance: AMITRIPTYLINE
  4. QUETIAPINE [Concomitant]
     Active Substance: QUETIAPINE
  5. CPAP MACHINE [Concomitant]

REACTIONS (5)
  - Drug hypersensitivity [None]
  - Amnesia [None]
  - Blindness [None]
  - Obsessive-compulsive disorder [None]
  - Feeling hot [None]

NARRATIVE: CASE EVENT DATE: 201407
